FAERS Safety Report 5467885-1 (Version None)
Quarter: 2007Q3

REPORT INFORMATION
  Report Type: 
  Country: None (occurrence: None)
  Receive Date: 20070820
  Receipt Date: 20070523
  Transmission Date: 20080115
  Serious: No
  Sender: FDA-Public Use
  Company Number: WAES 0701USA00196

PATIENT
  Age: 54 Year
  Sex: Female

DRUGS (3)
  1. JANUVIA [Suspect]
     Indication: DIABETES MELLITUS
     Dosage: 100 MG/DAILY/PO
     Route: 048
     Dates: start: 20061222, end: 20061222
  2. ACTOS [Concomitant]
  3. [THERAPY UNSPECIFIED] [Concomitant]

REACTIONS (2)
  - ORAL DISCOMFORT [None]
  - PRURITUS GENERALISED [None]
